FAERS Safety Report 19030614 (Version 4)
Quarter: 2021Q4

REPORT INFORMATION
  Report Type: Report from Study
  Country: FR (occurrence: FR)
  Receive Date: 20210319
  Receipt Date: 20211224
  Transmission Date: 20220303
  Serious: Yes (Other)
  Sender: FDA-Public Use
  Company Number: FR-BOEHRINGERINGELHEIM-2021-BI-088028

PATIENT
  Age: 50 Year
  Sex: Female

DRUGS (4)
  1. NINTEDANIB [Suspect]
     Active Substance: NINTEDANIB
     Indication: Product used for unknown indication
     Dosage: CUMULATIVE DOSAGE: 20700 MG
     Route: 048
     Dates: start: 20201119, end: 20210127
  2. NINTEDANIB [Suspect]
     Active Substance: NINTEDANIB
     Dates: start: 20210422, end: 20210506
  3. PEMBROLIZUMAB [Suspect]
     Active Substance: PEMBROLIZUMAB
     Indication: Product used for unknown indication
     Route: 042
     Dates: start: 20201126, end: 20210104
  4. PEMBROLIZUMAB [Suspect]
     Active Substance: PEMBROLIZUMAB
     Dates: start: 20210422, end: 20210506

REACTIONS (1)
  - Hepatic cytolysis [Recovered/Resolved]

NARRATIVE: CASE EVENT DATE: 20210218
